FAERS Safety Report 7611140-8 (Version None)
Quarter: 2011Q3

REPORT INFORMATION
  Report Type: 
  Country: None (occurrence: None)
  Receive Date: 20110707
  Receipt Date: 20110621
  Transmission Date: 20111222
  Serious: Yes (Death)
  Sender: FDA-Public Use
  Company Number: 963262

PATIENT
  Age: 80 Year
  Sex: Female

DRUGS (2)
  1. CIPROFLOXACIN [Suspect]
  2. METRONIDAZOLE [Suspect]

REACTIONS (4)
  - HYPERSENSITIVITY [None]
  - ACUTE HEPATIC FAILURE [None]
  - LIVER INJURY [None]
  - INTERNATIONAL NORMALISED RATIO INCREASED [None]
